FAERS Safety Report 8450310-6 (Version None)
Quarter: 2012Q2

REPORT INFORMATION
  Report Type: 
  Country: None (occurrence: None)
  Receive Date: 20120614
  Receipt Date: 20120614
  Transmission Date: 20120825
  Serious: Yes (Disabling)
  Sender: FDA-Public Use
  Company Number: None

PATIENT
  Sex: Male
  Weight: 108.8633 kg

DRUGS (1)
  1. SERTRALINE HYDROCHLORIDE [Suspect]

REACTIONS (5)
  - SOMNOLENCE [None]
  - APATHY [None]
  - LOSS OF EMPLOYMENT [None]
  - DISINHIBITION [None]
  - IMPAIRED WORK ABILITY [None]
